FAERS Safety Report 20845873 (Version 6)
Quarter: 2022Q4

REPORT INFORMATION
  Report Type: Spontaneous
  Country: CA (occurrence: CA)
  Receive Date: 20220518
  Receipt Date: 20221205
  Transmission Date: 20230113
  Serious: Yes (Other)
  Sender: FDA-Public Use
  Company Number: CA-PFIZER INC-202200712953

PATIENT
  Age: 65 Year
  Sex: Male

DRUGS (6)
  1. INFLECTRA [Suspect]
     Active Substance: INFLIXIMAB-DYYB
     Indication: Colitis ulcerative
     Dosage: 700 MG, EVERY 8 WEEKS
     Route: 042
     Dates: start: 202203
  2. INFLECTRA [Suspect]
     Active Substance: INFLIXIMAB-DYYB
     Dosage: UNK
  3. INFLECTRA [Suspect]
     Active Substance: INFLIXIMAB-DYYB
     Dosage: 700 MG, EVERY 8 WEEKS
     Route: 042
     Dates: start: 20220809
  4. INFLECTRA [Suspect]
     Active Substance: INFLIXIMAB-DYYB
     Dosage: UNK
  5. INFLECTRA [Suspect]
     Active Substance: INFLIXIMAB-DYYB
     Dosage: UNK
  6. SULFASALAZINE [Suspect]
     Active Substance: SULFASALAZINE
     Dosage: 1 DF, UNK DOSE, FREQ
     Route: 065

REACTIONS (9)
  - Haematochezia [Not Recovered/Not Resolved]
  - Weight decreased [Not Recovered/Not Resolved]
  - Clostridium difficile infection [Unknown]
  - Rectal haemorrhage [Not Recovered/Not Resolved]
  - Diarrhoea [Unknown]
  - Fatigue [Unknown]
  - Condition aggravated [Recovering/Resolving]
  - Dysphonia [Not Recovered/Not Resolved]
  - Secretion discharge [Not Recovered/Not Resolved]

NARRATIVE: CASE EVENT DATE: 20220101
